FAERS Safety Report 9951612 (Version 1)
Quarter: 2014Q1

REPORT INFORMATION
  Report Type: Report from Study
  Country: US (occurrence: US)
  Receive Date: 20140304
  Receipt Date: 20140304
  Transmission Date: 20141002
  Serious: No
  Sender: FDA-Public Use
  Company Number: US-ABBVIE-13P-163-1070694-00

PATIENT
  Age: 13 Year
  Sex: Female
  Weight: 42.22 kg

DRUGS (4)
  1. HUMIRA [Suspect]
     Indication: CROHN^S DISEASE
     Dates: start: 201211
  2. METHOTREXATE [Concomitant]
     Indication: CROHN^S DISEASE
  3. ANUCORT [Concomitant]
     Indication: CROHN^S DISEASE
     Route: 054
  4. PROBIOTIC [Concomitant]
     Indication: CROHN^S DISEASE

REACTIONS (4)
  - Injection site pain [Not Recovered/Not Resolved]
  - Injection site pain [Not Recovered/Not Resolved]
  - Injection site pain [Recovered/Resolved]
  - Off label use [Not Recovered/Not Resolved]
